FAERS Safety Report 16171724 (Version 1)
Quarter: 2019Q2

REPORT INFORMATION
  Report Type: Report from Study
  Country: CA (occurrence: CA)
  Receive Date: 20190408
  Receipt Date: 20190408
  Transmission Date: 20190711
  Serious: Yes (Hospitalization, Other)
  Sender: FDA-Public Use
  Company Number: CA-BRISTOL-MYERS SQUIBB COMPANY-BMS-2016-113707

PATIENT
  Sex: Male

DRUGS (1)
  1. ABATACEPT [Suspect]
     Active Substance: ABATACEPT
     Indication: RHEUMATOID ARTHRITIS
     Dosage: 1000 MG, Q4WK
     Route: 042
     Dates: start: 20070312

REACTIONS (9)
  - Hospitalisation [Unknown]
  - Fatigue [Recovering/Resolving]
  - Influenza like illness [Recovered/Resolved]
  - Eye disorder [Unknown]
  - Dizziness [Unknown]
  - Productive cough [Recovering/Resolving]
  - Cardiac disorder [Unknown]
  - Nasopharyngitis [Recovering/Resolving]
  - Diplopia [Unknown]
